FAERS Safety Report 8922648 (Version 3)
Quarter: 2013Q1

REPORT INFORMATION
  Report Type: Spontaneous
  Country: US (occurrence: US)
  Receive Date: 20121123
  Receipt Date: 20130211
  Transmission Date: 20140127
  Serious: Yes (Hospitalization, Other)
  Sender: FDA-Public Use
  Company Number: US-PFIZER INC-2012291100

PATIENT
  Age: 47 Year
  Sex: Female
  Weight: 47.17 kg

DRUGS (9)
  1. XALKORI [Suspect]
     Indication: NON-SMALL CELL LUNG CANCER METASTATIC
     Dosage: 250 MG, 2X/DAY
     Route: 048
     Dates: start: 20120927
  2. XALKORI [Interacting]
     Dosage: 250 MG, 1X/DAY
     Route: 048
     Dates: start: 20121015
  3. KEPPRA [Interacting]
     Indication: PROPHYLAXIS
  4. YASMIN [Concomitant]
     Dosage: 1 DF, 1X/DAY (28, ONE TABLET DAILY)
  5. PROTONIX [Concomitant]
     Dosage: 40 MG, 2X/DAY
  6. ATIVAN [Concomitant]
     Indication: NAUSEA
     Dosage: 0.5 MG, Q 6 H AS NEEDED
     Route: 048
  7. ATIVAN [Concomitant]
     Indication: VOMITING
  8. ADVAIR [Concomitant]
     Dosage: FLUTICASONE PROPIONATE 250, SALMETEROL XINAFOATE 50 ONE PUFF 2X/DAY
  9. OXYCODONE [Concomitant]
     Dosage: 5 MG, Q 4 HRS PM AS NEEDED
     Route: 048

REACTIONS (7)
  - Nausea [Recovering/Resolving]
  - Vomiting [Recovering/Resolving]
  - Diarrhoea [Unknown]
  - Abdominal pain [Recovering/Resolving]
  - Transaminases increased [Recovering/Resolving]
  - Drug interaction [Unknown]
  - Photopsia [Not Recovered/Not Resolved]
